FAERS Safety Report 15882940 (Version 6)
Quarter: 2019Q2

REPORT INFORMATION
  Report Type: Report from Study
  Country: CA (occurrence: CA)
  Receive Date: 20190129
  Receipt Date: 20190622
  Transmission Date: 20190711
  Serious: Yes (Disabling, Other)
  Sender: FDA-Public Use
  Company Number: CA-ROCHE-1532131

PATIENT
  Age: 71 Year
  Sex: Female
  Weight: 70 kg

DRUGS (25)
  1. AVASTIN [Suspect]
     Active Substance: BEVACIZUMAB
     Indication: GLIOBLASTOMA
     Route: 042
     Dates: start: 20140618
  2. AVASTIN [Suspect]
     Active Substance: BEVACIZUMAB
     Route: 042
     Dates: start: 20180808
  3. MELATONIN [Concomitant]
     Active Substance: MELATONIN
  4. SENOKOT [Concomitant]
     Active Substance: SENNOSIDES
  5. AVASTIN [Suspect]
     Active Substance: BEVACIZUMAB
     Indication: BRAIN NEOPLASM MALIGNANT
     Route: 042
     Dates: start: 20150520
  6. TEMOZOLOMIDE. [Suspect]
     Active Substance: TEMOZOLOMIDE
     Indication: PRODUCT USED FOR UNKNOWN INDICATION
     Route: 065
     Dates: start: 20140101
  7. LEVETIRACETAM. [Concomitant]
     Active Substance: LEVETIRACETAM
  8. APO-LORAZEPAM [Concomitant]
     Active Substance: LORAZEPAM
     Dosage: AS REQUIRED
     Route: 065
  9. ZOPLICONE [Concomitant]
     Active Substance: ZOPICLONE
  10. SULFATRIM [Concomitant]
     Active Substance: SULFAMETHOXAZOLE\TRIMETHOPRIM
  11. DULCOLAX (BISACODYL) [Concomitant]
     Active Substance: BISACODYL
     Route: 065
  12. AVASTIN [Suspect]
     Active Substance: BEVACIZUMAB
     Route: 042
     Dates: start: 20160107, end: 20160915
  13. FLUCONAZOLE. [Concomitant]
     Active Substance: FLUCONAZOLE
  14. TYLENOL [Concomitant]
     Active Substance: ACETAMINOPHEN
  15. TEMOZOLOMIDE. [Suspect]
     Active Substance: TEMOZOLOMIDE
     Route: 065
  16. PRUNELLA VULGARIS [Concomitant]
  17. METHYLPREDNISOLONE. [Concomitant]
     Active Substance: METHYLPREDNISOLONE
     Indication: PREMEDICATION
     Route: 042
     Dates: start: 20140618
  18. RANITIDINE HYDROCHLORIDE. [Concomitant]
     Active Substance: RANITIDINE HYDROCHLORIDE
  19. ADVIL [IBUPROFEN] [Concomitant]
     Active Substance: IBUPROFEN
     Route: 065
  20. TOPIRAMATE. [Concomitant]
     Active Substance: TOPIRAMATE
  21. GRANISETRON [Concomitant]
     Active Substance: GRANISETRON
     Dosage: 1 HR BEFORE CHEMO
     Route: 065
  22. DEXAMETHASONE. [Concomitant]
     Active Substance: DEXAMETHASONE
  23. PERPHENAZINE. [Concomitant]
     Active Substance: PERPHENAZINE
     Route: 065
  24. AVASTIN [Suspect]
     Active Substance: BEVACIZUMAB
     Route: 042
     Dates: start: 20180108
  25. DIPHENHYDRAMINE. [Concomitant]
     Active Substance: DIPHENHYDRAMINE
     Indication: PREMEDICATION
     Route: 048
     Dates: start: 20140618

REACTIONS (37)
  - Blood count abnormal [Unknown]
  - Red cell distribution width increased [Unknown]
  - Gamma-glutamyltransferase increased [Unknown]
  - Renal impairment [Not Recovered/Not Resolved]
  - Clostridium difficile infection [Recovered/Resolved]
  - Insomnia [Unknown]
  - Neoplasm [Unknown]
  - Hypotension [Unknown]
  - Mean cell haemoglobin increased [Not Recovered/Not Resolved]
  - Blood pressure diastolic decreased [Unknown]
  - Blood potassium decreased [Unknown]
  - Malaise [Not Recovered/Not Resolved]
  - Blood uric acid increased [Unknown]
  - Mean cell volume increased [Not Recovered/Not Resolved]
  - Weight decreased [Not Recovered/Not Resolved]
  - Drug ineffective [Unknown]
  - Blood chloride increased [Not Recovered/Not Resolved]
  - Disability [Unknown]
  - Rhinorrhoea [Unknown]
  - Fatigue [Unknown]
  - Productive cough [Unknown]
  - Oxygen saturation decreased [Unknown]
  - Body temperature decreased [Unknown]
  - Blood urea increased [Not Recovered/Not Resolved]
  - Glomerular filtration rate decreased [Unknown]
  - Dysphagia [Unknown]
  - Candida infection [Unknown]
  - Diarrhoea [Not Recovered/Not Resolved]
  - Cystitis [Unknown]
  - Ingrowing nail [Recovered/Resolved]
  - Alanine aminotransferase increased [Unknown]
  - Heart rate increased [Unknown]
  - White blood cell count decreased [Unknown]
  - Vomiting [Recovered/Resolved]
  - Platelet count decreased [Not Recovered/Not Resolved]
  - Carbon dioxide decreased [Unknown]
  - Blood thyroid stimulating hormone increased [Unknown]

NARRATIVE: CASE EVENT DATE: 2014
